FAERS Safety Report 9169182 (Version 1)
Quarter: 2013Q1

REPORT INFORMATION
  Report Type: Spontaneous
  Country: FR (occurrence: FR)
  Receive Date: 20130318
  Receipt Date: 20130318
  Transmission Date: 20140127
  Serious: Yes (Hospitalization)
  Sender: FDA-Public Use
  Company Number: FR-ROCHE-745318

PATIENT
  Age: 78 Year
  Sex: Male

DRUGS (2)
  1. ROCEPHINE [Suspect]
     Indication: LUNG DISORDER
     Route: 042
     Dates: start: 20101030, end: 20101108
  2. ROVAMYCINE [Suspect]
     Indication: LUNG DISORDER
     Route: 042
     Dates: start: 20101030, end: 20101108

REACTIONS (4)
  - Rash macular [Recovered/Resolved]
  - Oedema peripheral [Recovered/Resolved]
  - Pyrexia [Recovered/Resolved]
  - Inflammation [Recovered/Resolved]
